FAERS Safety Report 8055619-6 (Version None)
Quarter: 2012Q1

REPORT INFORMATION
  Report Type: 
  Country: None (occurrence: None)
  Receive Date: 20120119
  Receipt Date: 20120118
  Transmission Date: 20120608
  Serious: Yes (Hospitalization)
  Sender: FDA-Public Use
  Company Number: JP-JNJFOC-20120100088

PATIENT
  Sex: Female
  Weight: 47 kg

DRUGS (18)
  1. NOVAMIN [Concomitant]
     Dosage: THRICE A DAY
     Route: 048
     Dates: start: 20111219, end: 20111220
  2. MAGMITT [Concomitant]
     Dosage: THRICE A DAY
     Route: 048
     Dates: start: 20111221, end: 20111229
  3. FENTANYL [Suspect]
     Dosage: ONCE A DAY
     Route: 062
     Dates: start: 20111214, end: 20111221
  4. TRAMADOL HYDROCHLORIDE AND ACETAMINOPHEN [Suspect]
     Indication: PRODUCT USED FOR UNKNOWN INDICATION
     Dosage: 4 TIMES A DAY
     Route: 048
     Dates: start: 20111231
  5. MAGMITT [Concomitant]
     Dosage: TWICE A DAY
     Route: 048
     Dates: end: 20111220
  6. DEPAS [Concomitant]
     Route: 048
     Dates: start: 20111231
  7. UNKNOWN MEDICATION [Concomitant]
     Dosage: ONCE A DAY
     Route: 042
     Dates: start: 20111231, end: 20120104
  8. FENTANYL [Suspect]
     Indication: PRODUCT USED FOR UNKNOWN INDICATION
     Dosage: ONCE A DAY
     Route: 062
     Dates: start: 20111130, end: 20111213
  9. FENTANYL [Suspect]
     Dosage: ONCE A DAY
     Route: 062
     Dates: start: 20111222, end: 20111230
  10. TRAMADOL HYDROCHLORIDE AND ACETAMINOPHEN [Suspect]
     Dosage: TWICE A DAY
     Route: 048
     Dates: start: 20111130, end: 20111130
  11. FAMOTIDINE [Concomitant]
     Dosage: TWICE A DAY
     Route: 048
     Dates: end: 20120104
  12. LOXONIN [Concomitant]
     Dosage: ONCE A DAY
     Route: 062
  13. NOVAMIN [Concomitant]
     Dosage: 4 TIMES A DAY
     Route: 048
     Dates: start: 20111221, end: 20111226
  14. MAGMITT [Concomitant]
     Dosage: TWICE A DAY
     Route: 048
     Dates: start: 20111230
  15. FAMOTIDINE [Concomitant]
     Dosage: TWICE A DAY
     Route: 048
     Dates: start: 20120105
  16. ZOLPIDEM [Concomitant]
     Dosage: ONCE A DAY
     Route: 048
     Dates: start: 20111228
  17. TRAMADOL HYDROCHLORIDE AND ACETAMINOPHEN [Suspect]
     Dosage: 4 TIMES A DAY
     Route: 048
     Dates: end: 20111129
  18. NOVAMIN [Concomitant]
     Route: 048
     Dates: start: 20111227, end: 20111229

REACTIONS (1)
  - ADJUSTMENT DISORDER [None]
